FAERS Safety Report 6716076-2 (Version None)
Quarter: 2010Q2

REPORT INFORMATION
  Report Type: 
  Country: None (occurrence: None)
  Receive Date: 20100507
  Receipt Date: 20100430
  Transmission Date: 20101027
  Serious: Yes (Other)
  Sender: FDA-Public Use
  Company Number: A0858445A

PATIENT
  Sex: Female
  Weight: 25 kg

DRUGS (4)
  1. CEFUROXIME [Suspect]
     Indication: PNEUMONIA
     Dosage: 7.5ML TWICE PER DAY
     Route: 065
     Dates: start: 20090701, end: 20090801
  2. MUCOSOLVAN [Concomitant]
     Dosage: 5ML THREE TIMES PER DAY
     Dates: start: 20090701, end: 20090801
  3. BEROTEC [Concomitant]
     Dosage: 5DROP THREE TIMES PER DAY
     Dates: start: 20090701, end: 20090801
  4. IBUPROFEN [Concomitant]
     Dates: start: 20090701, end: 20090801

REACTIONS (6)
  - ABDOMINAL PAIN [None]
  - ANAEMIA [None]
  - CHEST DISCOMFORT [None]
  - DIARRHOEA [None]
  - NAUSEA [None]
  - VOMITING [None]
